FAERS Safety Report 9450068 (Version 3)
Quarter: 2013Q4

REPORT INFORMATION
  Report Type: Spontaneous
  Country: US (occurrence: US)
  Receive Date: 20130809
  Receipt Date: 20131223
  Transmission Date: 20140711
  Serious: Yes (Hospitalization)
  Sender: FDA-Public Use
  Company Number: US-BAYER-2013-096546

PATIENT
  Age: 25 Year
  Sex: Female
  Weight: 88.89 kg

DRUGS (3)
  1. MIRENA [Suspect]
     Indication: CONTRACEPTION
     Dosage: 20 MCG/24HR, CONT
     Route: 015
     Dates: start: 201203, end: 20120313
  2. SPRINTEC [Concomitant]
     Dosage: 1 DAILY ONE TIME A MONTH
  3. PREVACID [Concomitant]
     Dosage: 30 MG EVERY DAY BEFORE A MEAL

REACTIONS (4)
  - Uterine perforation [None]
  - Injury [None]
  - Pain [None]
  - Emotional distress [None]
